FAERS Safety Report 17075776 (Version 1)
Quarter: 2019Q4

REPORT INFORMATION
  Report Type: Spontaneous
  Country: US (occurrence: US)
  Receive Date: 20191125
  Receipt Date: 20191125
  Transmission Date: 20200122
  Serious: Yes (Disabling, Other)
  Sender: FDA-Public Use
  Company Number: None

PATIENT
  Age: 64 Year
  Sex: Female

DRUGS (1)
  1. RESTASIS [Suspect]
     Active Substance: CYCLOSPORINE
     Indication: DRY EYE
     Dosage: ?          QUANTITY:2 DROP(S);??
     Route: 047
     Dates: start: 20191015, end: 20191108

REACTIONS (4)
  - Ear disorder [None]
  - Headache [None]
  - Arthropathy [None]
  - Sinus disorder [None]

NARRATIVE: CASE EVENT DATE: 20191118
